FAERS Safety Report 4865759-8 (Version None)
Quarter: 2005Q4

REPORT INFORMATION
  Report Type: 
  Country: None (occurrence: None)
  Receive Date: 20051223
  Receipt Date: 20051214
  Transmission Date: 20060501
  Serious: Yes (Other)
  Sender: FDA-Public Use
  Company Number: PHBS2005JP18592

PATIENT

DRUGS (2)
  1. NEORAL [Suspect]
     Indication: APLASTIC ANAEMIA
     Dosage: 300 MG/D
     Route: 048
  2. ITRIZOLE [Suspect]
     Route: 048

REACTIONS (2)
  - INTRAOCULAR PRESSURE INCREASED [None]
  - PHOTOPSIA [None]
